FAERS Safety Report 6184005-9 (Version None)
Quarter: 2009Q2

REPORT INFORMATION
  Report Type: 
  Country: None (occurrence: None)
  Receive Date: 20090508
  Receipt Date: 20070417
  Transmission Date: 20091009
  Serious: Yes (Hospitalization, Other)
  Sender: FDA-Public Use
  Company Number: EC-PFIZER INC-2007031148

PATIENT
  Age: 35 Year

DRUGS (2)
  1. DALACIN [Suspect]
     Indication: ABSCESS
     Route: 042
  2. GENTAMICIN [Concomitant]
     Dosage: UNK

REACTIONS (2)
  - DEPRESSED LEVEL OF CONSCIOUSNESS [None]
  - RESPIRATORY FAILURE [None]
